FAERS Safety Report 24194176 (Version 2)
Quarter: 2024Q4

REPORT INFORMATION
  Report Type: Spontaneous
  Country: US (occurrence: US)
  Receive Date: 20240809
  Receipt Date: 20241003
  Transmission Date: 20250114
  Serious: No
  Sender: APOTEX
  Company Number: US-APOTEX-2024AP008645

PATIENT
  Sex: Female

DRUGS (1)
  1. TERIPARATIDE [Suspect]
     Active Substance: TERIPARATIDE
     Indication: Product used for unknown indication
     Dosage: 1 DOSAGE FORM, QD (1 INJECTION)
     Route: 065
     Dates: start: 202401

REACTIONS (7)
  - Urine abnormality [Unknown]
  - Product dose omission issue [Unknown]
  - Device mechanical issue [Unknown]
  - Device issue [Unknown]
  - Device defective [Unknown]
  - Product lot number issue [Unknown]
  - Wrong technique in product usage process [Unknown]

NARRATIVE: CASE EVENT DATE: 20240701
